FAERS Safety Report 9204950 (Version 2)
Quarter: 2013Q3

REPORT INFORMATION
  Report Type: Spontaneous
  Country: US (occurrence: US)
  Receive Date: 20130402
  Receipt Date: 20130913
  Transmission Date: 20140515
  Serious: Yes (Death, Hospitalization)
  Sender: FDA-Public Use
  Company Number: US-B.I. PHARMACEUTICALS,INC./RIDGEFIELD-2013-BI-08749BP

PATIENT
  Age: 83 Year
  Sex: Female
  Weight: 58.97 kg

DRUGS (11)
  1. PRADAXA [Suspect]
     Indication: ATRIAL FIBRILLATION
     Dosage: 300 MG
     Route: 048
     Dates: start: 20101201, end: 20110418
  2. CLONIDINE [Concomitant]
     Dosage: 0.6 MG
  3. ARICEPT [Concomitant]
     Dosage: 10 MG
  4. ARGINATE [Concomitant]
  5. SENOKOT [Concomitant]
     Dosage: 34.4 MG
  6. ASCORBIC ACID [Concomitant]
     Dosage: 1000 MG
  7. LOPRESSOR [Concomitant]
     Dosage: 100 MG
  8. LASIX [Concomitant]
     Dosage: 20 MG
  9. MULTIVITAMIN [Concomitant]
  10. TIAZAC [Concomitant]
     Dosage: 360 MG
  11. LANOXIN [Concomitant]

REACTIONS (8)
  - Gastrointestinal haemorrhage [Fatal]
  - Renal failure acute [Unknown]
  - Coagulopathy [Unknown]
  - Haemorrhagic anaemia [Unknown]
  - Sepsis syndrome [Unknown]
  - Multi-organ failure [Unknown]
  - Bradycardia [Unknown]
  - Atrioventricular block complete [Unknown]
